FAERS Safety Report 7162707-5 (Version None)
Quarter: 2010Q4

REPORT INFORMATION
  Report Type: 
  Country: None (occurrence: None)
  Receive Date: 20101215
  Receipt Date: 20091215
  Transmission Date: 20110411
  Serious: Yes (Hospitalization, Other)
  Sender: FDA-Public Use
  Company Number: GB-PFIZER INC-2008076664

PATIENT
  Age: 25 Year

DRUGS (1)
  1. CHANTIX [Suspect]
     Dosage: 1 MG, 2X/DAY
     Route: 048
     Dates: start: 20080629, end: 20080719

REACTIONS (3)
  - DYSPNOEA [None]
  - PALPITATIONS [None]
  - PANIC ATTACK [None]
